FAERS Safety Report 11478351 (Version 1)
Quarter: 2015Q3

REPORT INFORMATION
  Report Type: Spontaneous
  Country: FR (occurrence: FR)
  Receive Date: 20150909
  Receipt Date: 20150909
  Transmission Date: 20151125
  Serious: No
  Sender: FDA-Public Use
  Company Number: FR-JAZZ-2015-FR-009690

PATIENT
  Sex: Male

DRUGS (1)
  1. SODIUM OXYBATE [Suspect]
     Active Substance: SODIUM OXYBATE
     Indication: PRODUCT USED FOR UNKNOWN INDICATION
     Dosage: 2.25 G, BID
     Route: 048

REACTIONS (5)
  - Chills [Unknown]
  - Rhinitis [Unknown]
  - Myasthenia gravis [Unknown]
  - Condition aggravated [Unknown]
  - Cough [Unknown]
